FAERS Safety Report 8776713 (Version 2)
Quarter: 2012Q4

REPORT INFORMATION
  Report Type: 
  Country: DE (occurrence: DE)
  Receive Date: 20120910
  Receipt Date: 20120924
  Transmission Date: 20130627
  Serious: Yes (Other)
  Sender: FDA-Public Use
  Company Number: PHHY2012DE077194

PATIENT
  Sex: Male

DRUGS (5)
  1. GLIVEC [Suspect]
     Indication: GASTROINTESTINAL STROMAL TUMOUR
     Dosage: 400 mg, per day
     Dates: start: 200512
  2. GLIVEC [Suspect]
     Dosage: 400 mg, daily
     Dates: start: 2006, end: 200707
  3. GLIVEC [Suspect]
     Dosage: 400 mg, daily
     Dates: start: 200802, end: 200903
  4. GLIVEC [Suspect]
     Dosage: 800 mg, daily
     Dates: start: 200903, end: 200911
  5. SUNITINIB [Suspect]
     Indication: GASTROINTESTINAL STROMAL TUMOUR
     Dosage: UNK UKN, UNK
     Dates: start: 200911

REACTIONS (2)
  - Gastrointestinal fistula [Unknown]
  - Metastasis [Unknown]
